FAERS Safety Report 4644807-4 (Version None)
Quarter: 2005Q2

REPORT INFORMATION
  Report Type: 
  Country: None (occurrence: None)
  Receive Date: 20050422
  Receipt Date: 20050411
  Transmission Date: 20051028
  Serious: Yes (Other)
  Sender: FDA-Public Use
  Company Number: 2005052816

PATIENT
  Age: 25 Year
  Sex: Male
  Weight: 68.0396 kg

DRUGS (7)
  1. PHENELZINE SULFATE (PHENELZINE SULFATE) [Suspect]
     Indication: ABNORMAL BEHAVIOUR
     Dosage: 45 MG (15 MG, 3 IN 1 D), ORAL
     Route: 048
     Dates: start: 20041001
  2. PHENELZINE SULFATE (PHENELZINE SULFATE) [Suspect]
     Indication: ANXIETY
     Dosage: 45 MG (15 MG, 3 IN 1 D), ORAL
     Route: 048
     Dates: start: 20041001
  3. PHENELZINE SULFATE (PHENELZINE SULFATE) [Suspect]
     Indication: DEPRESSION
     Dosage: 45 MG (15 MG, 3 IN 1 D), ORAL
     Route: 048
     Dates: start: 20041001
  4. PHENELZINE SULFATE (PHENELZINE SULFATE) [Suspect]
     Indication: SOCIAL PHOBIA
     Dosage: 45 MG (15 MG, 3 IN 1 D), ORAL
     Route: 048
     Dates: start: 20041001
  5. ALL OTHER THERAPEUTIC PRODUCTS (ALL OTHER THERAPEUTIC PRODUCTS) [Suspect]
     Indication: ILL-DEFINED DISORDER
  6. GABAPENTIN [Concomitant]
  7. QUETIAPINE FUMARATE [Concomitant]

REACTIONS (58)
  - ABDOMINAL PAIN UPPER [None]
  - ADVERSE EVENT [None]
  - AGITATION [None]
  - AMNESIA [None]
  - APATHY [None]
  - ARTHRITIS [None]
  - AURA [None]
  - BURNING SENSATION [None]
  - CONSTIPATION [None]
  - CONVULSION [None]
  - DEPRESSED LEVEL OF CONSCIOUSNESS [None]
  - DIZZINESS [None]
  - DRUG INEFFECTIVE [None]
  - DRY MOUTH [None]
  - DYSKINESIA [None]
  - DYSPNOEA [None]
  - EUPHORIC MOOD [None]
  - FACIAL SPASM [None]
  - FATIGUE [None]
  - FEAR [None]
  - FEELING HOT [None]
  - FEELING OF RELAXATION [None]
  - FLATULENCE [None]
  - FOOD CRAVING [None]
  - HYPERTENSIVE CRISIS [None]
  - HYPOAESTHESIA [None]
  - INSOMNIA [None]
  - INTESTINAL FUNCTIONAL DISORDER [None]
  - IRRITABILITY [None]
  - LOSS OF CONSCIOUSNESS [None]
  - MALAISE [None]
  - MICTURITION FREQUENCY DECREASED [None]
  - MICTURITION URGENCY [None]
  - MUSCLE SPASMS [None]
  - MUSCLE TWITCHING [None]
  - MUSCULAR WEAKNESS [None]
  - MUSCULOSKELETAL STIFFNESS [None]
  - MYALGIA [None]
  - MYOCLONUS [None]
  - NAUSEA [None]
  - NEUROPATHY PERIPHERAL [None]
  - ORTHOSTATIC HYPOTENSION [None]
  - OVERDOSE [None]
  - PAIN [None]
  - PAIN IN EXTREMITY [None]
  - PALPITATIONS [None]
  - PARAESTHESIA [None]
  - SOMNOLENCE [None]
  - STRESS [None]
  - SYNCOPE [None]
  - TENDONITIS [None]
  - TINNITUS [None]
  - TRANSIENT ISCHAEMIC ATTACK [None]
  - TREMOR [None]
  - VERTIGO [None]
  - VISION BLURRED [None]
  - VISUAL DISTURBANCE [None]
  - WEIGHT INCREASED [None]
